FAERS Safety Report 15411604 (Version 1)
Quarter: 2018Q3

REPORT INFORMATION
  Report Type: Spontaneous
  Country: RS (occurrence: RS)
  Receive Date: 20180921
  Receipt Date: 20180921
  Transmission Date: 20181010
  Serious: Yes (Death)
  Sender: FDA-Public Use
  Company Number: RS-TEVA-2018-RS-955637

PATIENT
  Age: 48 Year
  Sex: Female
  Weight: 55 kg

DRUGS (3)
  1. DEXASON [Concomitant]
     Active Substance: DEXAMETHASONE
     Indication: PREMEDICATION
  2. SINPLATIN [Suspect]
     Active Substance: CISPLATIN
     Indication: CERVIX CARCINOMA STAGE III
     Route: 041
     Dates: start: 20180321, end: 20180321
  3. RANITIDINE. [Concomitant]
     Active Substance: RANITIDINE
     Indication: PREMEDICATION

REACTIONS (5)
  - Dyspnoea [Fatal]
  - Sopor [Fatal]
  - Cardiovascular insufficiency [Fatal]
  - Shock [Fatal]
  - Hypotension [Fatal]

NARRATIVE: CASE EVENT DATE: 20180321
